FAERS Safety Report 5288868-0 (Version None)
Quarter: 2007Q2

REPORT INFORMATION
  Report Type: 
  Country: None (occurrence: None)
  Receive Date: 20070405
  Receipt Date: 20070326
  Transmission Date: 20071010
  Serious: Yes (Hospitalization)
  Sender: FDA-Public Use
  Company Number: FR-PFIZER INC-2007023600

PATIENT
  Age: 47 Year
  Sex: Female
  Weight: 67 kg

DRUGS (6)
  1. SOLU-MEDROL [Suspect]
     Indication: POLYARTHRITIS
     Route: 042
     Dates: start: 20070116, end: 20070116
  2. CORTANCYL [Suspect]
     Indication: POLYARTHRITIS
     Route: 048
  3. DEXCHLORPHENIRAMINE [Suspect]
     Route: 042
     Dates: start: 20070116, end: 20070116
  4. PARACETAMOL [Suspect]
     Dosage: TEXT:1G; 4G-FREQ:QID: EVERY DAY
     Route: 048
  5. LEVOTHYROXINE SODIUM [Suspect]
     Indication: THYROIDITIS
     Route: 048
  6. RITUXIMAB [Suspect]
     Indication: POLYARTHRITIS
     Dosage: TEXT:1G; 1G-FREQ:FREQUENCY: DAILY
     Route: 042
     Dates: start: 20070116, end: 20070116

REACTIONS (3)
  - GINGIVAL BLEEDING [None]
  - NEUTROPENIA [None]
  - WHITE BLOOD CELL COUNT DECREASED [None]
